FAERS Safety Report 5257269-3 (Version None)
Quarter: 2007Q1

REPORT INFORMATION
  Report Type: 
  Country: None (occurrence: None)
  Receive Date: 20070307
  Receipt Date: 20070228
  Transmission Date: 20070707
  Serious: Yes (Hospitalization, Other)
  Sender: FDA-Public Use
  Company Number: FI-BRISTOL-MYERS SQUIBB COMPANY-13341250

PATIENT
  Age: 66 Year
  Sex: Male

DRUGS (4)
  1. DASATINIB [Interacting]
     Indication: LEUKAEMIA
     Route: 048
     Dates: start: 20060216
  2. METHOTREXATE [Suspect]
     Route: 037
     Dates: start: 20060301, end: 20060301
  3. CYTARABINE [Interacting]
     Route: 037
     Dates: start: 20060301, end: 20060301
  4. PREDNISOLONE [Concomitant]
     Route: 037
     Dates: start: 20060301, end: 20060301

REACTIONS (3)
  - ARACHNOIDITIS [None]
  - DRUG INTERACTION [None]
  - PYREXIA [None]
